FAERS Safety Report 6908207-6 (Version None)
Quarter: 2010Q3

REPORT INFORMATION
  Report Type: 
  Country: None (occurrence: None)
  Receive Date: 20100708
  Receipt Date: 20081125
  Transmission Date: 20110219
  Serious: Yes (Other)
  Sender: FDA-Public Use
  Company Number: 2008001990

PATIENT
  Sex: Male

DRUGS (2)
  1. CHANTIX [Suspect]
     Indication: SMOKING CESSATION THERAPY
  2. ROZEREM [Suspect]
     Indication: INSOMNIA
     Dosage: 8 MG, 1X/DAY, ORAL
     Route: 048
     Dates: start: 20070301

REACTIONS (1)
  - HALLUCINATION [None]
